FAERS Safety Report 7150732-X (Version None)
Quarter: 2010Q4

REPORT INFORMATION
  Report Type: 
  Country: None (occurrence: None)
  Receive Date: 20101124
  Receipt Date: 20101109
  Transmission Date: 20110411
  Serious: Yes (Other)
  Sender: FDA-Public Use
  Company Number: 1000017414

PATIENT
  Age: 22 Year
  Sex: Female
  Weight: 52 kg

DRUGS (4)
  1. ESCITALOPRAM [Suspect]
     Indication: DEPRESSION
     Dosage: 10 MG (10 MG, 1 IN 1 D), ORAL
     Route: 048
     Dates: start: 20100618, end: 20100630
  2. ALPRAZOLAM [Concomitant]
  3. DIANE 35 (DIANE) [Concomitant]
  4. OROPERIDYS (DOMPERIDONE) [Concomitant]

REACTIONS (4)
  - BALANCE DISORDER [None]
  - MALAISE [None]
  - MUSCLE SPASMS [None]
  - NAUSEA [None]
